FAERS Safety Report 9136086 (Version 1)
Quarter: 2013Q1

REPORT INFORMATION
  Report Type: Spontaneous
  Country: US (occurrence: US)
  Receive Date: 20130304
  Receipt Date: 20130304
  Transmission Date: 20140127
  Serious: No
  Sender: FDA-Public Use
  Company Number: US-ABBOTT-12P-163-0934267-00

PATIENT
  Age: 70 Year
  Sex: Male

DRUGS (2)
  1. ANDROGEL 1% [Suspect]
     Indication: BLOOD TESTOSTERONE DECREASED
     Dosage: 5 GRAM DAILY
     Route: 061
  2. SYNTHROID [Concomitant]
     Indication: BLOOD THYROID STIMULATING HORMONE DECREASED

REACTIONS (2)
  - Blood testosterone decreased [Recovering/Resolving]
  - Fatigue [Not Recovered/Not Resolved]
